FAERS Safety Report 11394666 (Version 10)
Quarter: 2016Q2

REPORT INFORMATION
  Report Type: Spontaneous
  Country: RU (occurrence: RU)
  Receive Date: 20150819
  Receipt Date: 20160419
  Transmission Date: 20160815
  Serious: Yes (Life-Threatening, Hospitalization)
  Sender: FDA-Public Use
  Company Number: RU-SA-2015SA121142

PATIENT
  Age: 3 Year
  Sex: Male
  Weight: 15 kg

DRUGS (4)
  1. CERAXON [Concomitant]
     Active Substance: CITICOLINE
  2. CONCOR [Concomitant]
     Active Substance: BISOPROLOL FUMARATE
     Indication: TACHYCARDIA
     Dosage: 2.5 MG, 1/4 TAB
     Route: 048
     Dates: start: 201508
  3. MYOZYME [Suspect]
     Active Substance: ALGLUCOSIDASE ALFA
     Indication: GLYCOGEN STORAGE DISEASE TYPE II
     Dosage: C4092H08 : LOT NUMBER FO THE LATEST INFUSION
     Route: 041
     Dates: start: 2013
  4. SULCEF [Concomitant]
     Active Substance: CEFOPERAZONE\SULBACTAM
     Indication: PROPHYLAXIS
     Dosage: 1 FLACON PER 10 ML OF NORMAL SALINE
     Route: 042
     Dates: start: 20151230

REACTIONS (9)
  - Cardiac failure acute [Recovering/Resolving]
  - Dyspnoea [Recovering/Resolving]
  - Cyanosis [Recovering/Resolving]
  - Pneumonia aspiration [Recovering/Resolving]
  - Laryngitis [Recovered/Resolved]
  - Aspiration [Recovering/Resolving]
  - Pulmonary fibrosis [Recovering/Resolving]
  - Sinus tachycardia [Unknown]
  - Weight increased [Unknown]

NARRATIVE: CASE EVENT DATE: 201508
